FAERS Safety Report 18483524 (Version 1)
Quarter: 2020Q4

REPORT INFORMATION
  Report Type: Spontaneous
  Country: US (occurrence: US)
  Receive Date: 20201110
  Receipt Date: 20201110
  Transmission Date: 20210114
  Serious: No
  Sender: FDA-Public Use
  Company Number: US-TORRENT-00009420

PATIENT
  Sex: Male
  Weight: 86 kg

DRUGS (1)
  1. LOSARTAN. [Suspect]
     Active Substance: LOSARTAN
     Indication: HYPERTENSION
     Dosage: FROM LAST ONE AND HALF MONTH
     Route: 048
     Dates: start: 201909

REACTIONS (1)
  - Weight increased [Unknown]
